FAERS Safety Report 14853912 (Version 1)
Quarter: 2018Q2

REPORT INFORMATION
  Report Type: Spontaneous
  Country: ES (occurrence: ES)
  Receive Date: 20180507
  Receipt Date: 20180507
  Transmission Date: 20180711
  Serious: Yes (Death, Hospitalization)
  Sender: FDA-Public Use
  Company Number: ES-OTSUKA-2018_011570

PATIENT
  Age: 37 Year
  Sex: Male

DRUGS (6)
  1. CICLOFOSFAMIDA [Suspect]
     Active Substance: CYCLOPHOSPHAMIDE
     Indication: ACUTE MYELOID LEUKAEMIA
     Dosage: 2 GR IN TOTAL
     Route: 042
     Dates: start: 20130824, end: 20130825
  2. CICLOSPORINA [Suspect]
     Active Substance: CYCLOSPORINE
     Indication: PRODUCT USED FOR UNKNOWN INDICATION
     Dosage: UNK
     Route: 065
     Dates: start: 20130820
  3. MESNA. [Concomitant]
     Active Substance: MESNA
     Indication: PRODUCT USED FOR UNKNOWN INDICATION
     Dosage: 8 G, UNK
     Route: 042
     Dates: start: 20130825, end: 20130826
  4. BUSULFAN. [Suspect]
     Active Substance: BUSULFAN
     Indication: ACUTE MYELOID LEUKAEMIA
     Dosage: 240 MG IN TOTAL
     Route: 042
     Dates: start: 20130822, end: 20130824
  5. METILPREDNISOLONA [Suspect]
     Active Substance: METHYLPREDNISOLONE
     Indication: ACUTE MYELOID LEUKAEMIA
     Dosage: 80 MG IN TOTAL
     Route: 042
     Dates: start: 20130827, end: 20130827
  6. FLUDARABINA [Suspect]
     Active Substance: FLUDARABINE PHOSPHATE
     Indication: ACUTE MYELOID LEUKAEMIA
     Dosage: 240 MG IN TOTAL
     Route: 042
     Dates: start: 20130821, end: 20130824

REACTIONS (2)
  - Drug interaction [Unknown]
  - Cytomegalovirus hepatitis [Fatal]

NARRATIVE: CASE EVENT DATE: 20130909
